FAERS Safety Report 19068040 (Version 2)
Quarter: 2021Q2

REPORT INFORMATION
  Report Type: Spontaneous
  Country: NL (occurrence: NL)
  Receive Date: 20210329
  Receipt Date: 20210628
  Transmission Date: 20210717
  Serious: Yes (Other)
  Sender: FDA-Public Use
  Company Number: NL-AUROBINDO-AUR-APL-2021-012853

PATIENT
  Age: 24 Year
  Sex: Female

DRUGS (2)
  1. MEBENDAZOLE. [Interacting]
     Active Substance: MEBENDAZOLE
     Indication: PRODUCT USED FOR UNKNOWN INDICATION
     Dosage: AT 18:30
     Route: 065
  2. METRONIDAZOLE. [Suspect]
     Active Substance: METRONIDAZOLE
     Indication: PRODUCT USED FOR UNKNOWN INDICATION
     Dosage: AT 22:00
     Route: 065

REACTIONS (3)
  - Stevens-Johnson syndrome [Unknown]
  - Drug interaction [Unknown]
  - Self-medication [Unknown]

NARRATIVE: CASE EVENT DATE: 202103
